FAERS Safety Report 25417385 (Version 1)
Quarter: 2025Q2

REPORT INFORMATION
  Report Type: Spontaneous
  Country: GB (occurrence: GB)
  Receive Date: 20250610
  Receipt Date: 20250610
  Transmission Date: 20250716
  Serious: Yes (Other)
  Sender: IPSEN BIOPHARMACEUTICALS, INC.
  Company Number: None

PATIENT
  Age: 53 Year

DRUGS (2)
  1. ELAFIBRANOR [Suspect]
     Active Substance: ELAFIBRANOR
     Indication: Product used for unknown indication
     Route: 065
  2. FOLIC ACID [Concomitant]
     Active Substance: FOLIC ACID

REACTIONS (1)
  - Hypertransaminasaemia [Recovered/Resolved]
